FAERS Safety Report 5067790-9 (Version None)
Quarter: 2006Q3

REPORT INFORMATION
  Report Type: 
  Country: None (occurrence: None)
  Receive Date: 20060802
  Receipt Date: 20060608
  Transmission Date: 20061208
  Serious: Yes (Hospitalization)
  Sender: FDA-Public Use
  Company Number: JP-JPN-A200602020

PATIENT
  Age: 1 Day
  Sex: Male
  Weight: 2.6 kg

DRUGS (9)
  1. PAXIL [Suspect]
     Indication: DEPRESSION
     Dosage: 30MG PER DAY
     Dates: end: 20060502
  2. DEPAS [Concomitant]
     Indication: DEPRESSION
     Dates: end: 20060502
  3. EVAMYL [Concomitant]
     Indication: DEPRESSION
     Dates: end: 20060502
  4. INSULIN [Concomitant]
     Indication: GESTATIONAL DIABETES
     Dates: end: 20060502
  5. INSULIN [Concomitant]
     Dosage: 14IU PER DAY
     Dates: end: 20060502
  6. UTEMERIN [Concomitant]
     Dates: start: 20060308
  7. FLAGYL [Concomitant]
     Dates: start: 20060309
  8. MIRACLID [Concomitant]
     Dates: start: 20060315
  9. MAGNESIUM SULPHATE + GLUCOSE [Concomitant]
     Dates: start: 20060328

REACTIONS (7)
  - DRUG EXPOSURE DURING PREGNANCY [None]
  - DRUG WITHDRAWAL SYNDROME NEONATAL [None]
  - IRRITABILITY [None]
  - NEONATAL DISORDER [None]
  - PYREXIA [None]
  - TACHYPNOEA [None]
  - TREMOR NEONATAL [None]
